FAERS Safety Report 10406729 (Version 1)
Quarter: 2014Q3

REPORT INFORMATION
  Report Type: Spontaneous
  Country: US (occurrence: US)
  Receive Date: 20140825
  Receipt Date: 20140825
  Transmission Date: 20150326
  Serious: No
  Sender: FDA-Public Use
  Company Number: US-ASTRAZENECA-2014SE60789

PATIENT
  Age: 899 Month
  Sex: Female
  Weight: 72.6 kg

DRUGS (7)
  1. CITRICAL WITH D3 [Concomitant]
     Indication: BONE LOSS
     Dosage: 2 TABLETS 600 MG  DAILY
     Dates: start: 1999
  2. TOPROL XL [Suspect]
     Active Substance: METOPROLOL SUCCINATE
     Indication: HYPERTENSION
     Dosage: GENERIC BY WATSON PHARMA, 50 MG DAILY
     Route: 065
     Dates: start: 20140228, end: 20140630
  3. TOPROL XL [Suspect]
     Active Substance: METOPROLOL SUCCINATE
     Indication: HYPERTENSION
     Dosage: WOCKHARDT, 50 MG DAILY
     Route: 065
     Dates: start: 20140701, end: 201407
  4. MULTIVITAMIN NATUREMADE FOR HER WITHOUT IRON [Concomitant]
     Indication: VITAMIN SUPPLEMENTATION
     Dosage: ONE TABLET, DAILY
     Dates: start: 2004
  5. FLAXSEED [Concomitant]
     Active Substance: FLAX SEED
     Indication: DRY EYE
     Dosage: 2 TABLETS 1200 MG  DAILY
     Dates: start: 1999
  6. TOPROL XL [Suspect]
     Active Substance: METOPROLOL SUCCINATE
     Indication: HYPERTENSION
     Route: 048
     Dates: start: 20140721
  7. ASPIRIN. [Concomitant]
     Active Substance: ASPIRIN
     Indication: PROPHYLAXIS
     Dates: start: 1999

REACTIONS (4)
  - Reaction to drug excipients [Unknown]
  - Heart rate irregular [Not Recovered/Not Resolved]
  - Drug hypersensitivity [Unknown]
  - Palpitations [Not Recovered/Not Resolved]

NARRATIVE: CASE EVENT DATE: 201407
